FAERS Safety Report 4797273-2 (Version None)
Quarter: 2005Q4

REPORT INFORMATION
  Report Type: 
  Country: None (occurrence: None)
  Receive Date: 20051013
  Receipt Date: 20051011
  Transmission Date: 20060501
  Serious: Yes (Hospitalization)
  Sender: FDA-Public Use
  Company Number: US-GLAXOSMITHKLINE-A0577835A

PATIENT
  Age: 59 Year
  Sex: Female

DRUGS (2)
  1. DEXEDRINE [Suspect]
     Indication: GRAVITATIONAL OEDEMA
     Dosage: 25MG PER DAY
     Route: 048
     Dates: start: 19840101
  2. SYNTHROID [Concomitant]

REACTIONS (7)
  - CONSTIPATION [None]
  - EYELID OEDEMA [None]
  - FATIGUE [None]
  - HYPERSOMNIA [None]
  - LIMB DISCOMFORT [None]
  - OEDEMA PERIPHERAL [None]
  - URINE FLOW DECREASED [None]
